FAERS Safety Report 4838618-4 (Version None)
Quarter: 2005Q4

REPORT INFORMATION
  Report Type: 
  Country: None (occurrence: None)
  Receive Date: 20051129
  Receipt Date: 20050801
  Transmission Date: 20060501
  Serious: No
  Sender: FDA-Public Use
  Company Number: US-GLAXOSMITHKLINE-A0568383A

PATIENT
  Age: 53 Year
  Sex: Male
  Weight: 75 kg

DRUGS (7)
  1. COMMIT [Suspect]
  2. NICODERM CQ [Suspect]
  3. NICODERM CQ [Suspect]
  4. NICODERM CQ [Suspect]
  5. LEXAPRO [Concomitant]
     Indication: ANXIETY
     Route: 048
  6. FLEXERIL [Concomitant]
     Indication: BACK DISORDER
     Route: 048
  7. CLONAZEPAM [Concomitant]
     Indication: DEPRESSION
     Route: 048

REACTIONS (2)
  - APPLICATION SITE DERMATITIS [None]
  - CONVERSION DISORDER [None]
